FAERS Safety Report 7551027-2 (Version None)
Quarter: 2011Q2

REPORT INFORMATION
  Report Type: 
  Country: None (occurrence: None)
  Receive Date: 20110616
  Receipt Date: 20110603
  Transmission Date: 20111010
  Serious: Yes (Other)
  Sender: FDA-Public Use
  Company Number: FR-CELGENEUS-056-C5013-11060741

PATIENT
  Sex: Male
  Weight: 86 kg

DRUGS (9)
  1. PREDNISONE [Suspect]
     Indication: MULTIPLE MYELOMA
     Dosage: 180 MILLIGRAM
     Route: 065
     Dates: start: 20100105
  2. MELPHALAN HYDROCHLORIDE [Suspect]
     Indication: MULTIPLE MYELOMA
     Dosage: 22 MILLIGRAM
     Route: 065
     Dates: start: 20100105
  3. THALIDOMIDE [Suspect]
     Dosage: 200 MILLIGRAM
     Route: 048
     Dates: start: 20110412, end: 20110522
  4. PREDNISONE [Suspect]
     Dosage: 175 MILLIGRAM
     Route: 065
     Dates: start: 20110412, end: 20110415
  5. PAMIDRONATE DISODIUM [Concomitant]
     Indication: BONE LESION
     Dosage: 2.1429 MILLIGRAM
     Route: 051
     Dates: start: 20100215
  6. ASPIRIN [Concomitant]
     Indication: PROPHYLAXIS
     Dosage: 75 MILLIGRAM
     Route: 048
     Dates: start: 20100106
  7. EPOGEN [Concomitant]
     Dosage: 4285.7143 IU (INTERNATIONAL UNIT)
     Route: 058
     Dates: start: 20100913
  8. MELPHALAN HYDROCHLORIDE [Suspect]
     Dosage: 22 MILLIGRAM
     Route: 065
     Dates: start: 20110412, end: 20110415
  9. THALIDOMIDE [Suspect]
     Indication: MULTIPLE MYELOMA
     Dosage: 200 MILLIGRAM
     Route: 048
     Dates: start: 20100105

REACTIONS (1)
  - ACUTE MYELOID LEUKAEMIA [None]
